FAERS Safety Report 7024452-6 (Version None)
Quarter: 2010Q4

REPORT INFORMATION
  Report Type: 
  Country: None (occurrence: None)
  Receive Date: 20101001
  Receipt Date: 20100923
  Transmission Date: 20110411
  Serious: Yes (Other)
  Sender: FDA-Public Use
  Company Number: DE-JNJFOC-20100907136

PATIENT
  Sex: Female

DRUGS (7)
  1. RISPERDAL [Suspect]
     Indication: ACCIDENTAL EXPOSURE
     Route: 048
  2. DILTIAZEM [Suspect]
     Indication: ACCIDENTAL EXPOSURE
     Route: 048
  3. METOPROLOL TARTRATE [Suspect]
     Indication: ACCIDENTAL EXPOSURE
     Route: 048
  4. DIGITALIS TAB [Suspect]
     Indication: ACCIDENTAL EXPOSURE
     Route: 048
  5. BIPERIDEN HYDROCHLORIDE TAB [Suspect]
     Indication: ACCIDENTAL EXPOSURE
     Route: 048
  6. DELIX [Suspect]
     Indication: ACCIDENTAL EXPOSURE
     Route: 048
  7. CITALOPRAM HYDROBROMIDE [Suspect]
     Indication: ACCIDENTAL EXPOSURE
     Route: 048

REACTIONS (2)
  - ACCIDENTAL EXPOSURE [None]
  - HYPOTENSION [None]
